FAERS Safety Report 7346550-X (Version None)
Quarter: 2011Q1

REPORT INFORMATION
  Report Type: 
  Country: None (occurrence: None)
  Receive Date: 20110311
  Receipt Date: 20110302
  Transmission Date: 20110831
  Serious: Yes (Hospitalization)
  Sender: FDA-Public Use
  Company Number: US-SANOFI-AVENTIS-2011SA013173

PATIENT
  Age: 83 Year
  Sex: Male

DRUGS (6)
  1. K-DUR [Concomitant]
  2. SYNTHROID [Concomitant]
  3. ASPIRIN [Concomitant]
     Route: 048
  4. LOPRESSOR [Concomitant]
     Route: 048
  5. LASIX [Concomitant]
  6. MULTAQ [Suspect]
     Indication: ATRIAL FIBRILLATION
     Route: 048
     Dates: start: 20101101, end: 20110215

REACTIONS (3)
  - ARRHYTHMIA [None]
  - PULMONARY EMBOLISM [None]
  - DRUG INEFFECTIVE [None]
